APPROVED DRUG PRODUCT: TLANDO
Active Ingredient: TESTOSTERONE UNDECANOATE
Strength: 112.5MG
Dosage Form/Route: CAPSULE;ORAL
Application: N208088 | Product #001
Applicant: VERITY PHARMACEUTICALS INC
Approved: Mar 28, 2022 | RLD: Yes | RS: Yes | Type: RX

PATENTS:
Patent 12310978 | Expires: Feb 21, 2039
Patent 11433083 | Expires: Nov 30, 2030
Patent 11559530 | Expires: Nov 28, 2037
Patent 11364249 | Expires: Nov 30, 2030
Patent 12011503 | Expires: Oct 16, 2040
Patent 12011503 | Expires: Oct 16, 2040
Patent 10716794 | Expires: Nov 30, 2030
Patent 9949985 | Expires: Nov 30, 2030
Patent 11311555 | Expires: Nov 30, 2030
Patent 11464735 | Expires: Apr 28, 2041
Patent 11304960 | Expires: Jan 8, 2029
Patent 10226473 | Expires: Nov 30, 2030
Patent 9943527 | Expires: Nov 30, 2030
Patent 8865695 | Expires: Jan 8, 2029
Patent 8778922 | Expires: Jan 8, 2029